FAERS Safety Report 4514329-X (Version None)
Quarter: 2004Q4

REPORT INFORMATION
  Report Type: 
  Country: None (occurrence: None)
  Receive Date: 20041124
  Receipt Date: 20041109
  Transmission Date: 20050328
  Serious: Yes (Death)
  Sender: FDA-Public Use
  Company Number: CA_041107421

PATIENT
  Age: 75 Year

DRUGS (1)
  1. XIGRIS [Suspect]

REACTIONS (1)
  - CONDITION AGGRAVATED [None]
